FAERS Safety Report 8182242-5 (Version None)
Quarter: 2012Q1

REPORT INFORMATION
  Report Type: 
  Country: None (occurrence: None)
  Receive Date: 20120302
  Receipt Date: 20120223
  Transmission Date: 20120608
  Serious: Yes (Hospitalization, Other)
  Sender: FDA-Public Use
  Company Number: PHHY2012US015828

PATIENT
  Age: 68 Year
  Sex: Male

DRUGS (9)
  1. THYMOGLOBULIN [Concomitant]
     Dosage: 1 MG/KG, UNK
  2. SOLU-MEDROL [Concomitant]
     Indication: IMMUNOSUPPRESSION
     Dosage: 100 MG, PER DAY
  3. TACROLIMUS [Suspect]
     Indication: IMMUNOSUPPRESSION
     Dosage: 2 MG, BID
  4. TACROLIMUS [Suspect]
     Dosage: 3 MG, BID
  5. SOLU-MEDROL [Concomitant]
     Dosage: 50 MG, PER DAY
  6. THYMOGLOBULIN [Concomitant]
     Indication: IMMUNOSUPPRESSION
     Dosage: 4 MEQ/KG, UNK
  7. MYCOPHENOLATE MOFETIL [Concomitant]
     Dosage: 540 MG, BID
  8. PREDNISONE [Concomitant]
     Indication: IMMUNOSUPPRESSION
     Dosage: 20 G, DAILY
  9. TACROLIMUS [Suspect]
     Dosage: 2 MG, BID

REACTIONS (12)
  - FATIGUE [None]
  - MALAISE [None]
  - TRANSPLANT REJECTION [None]
  - THROMBOTIC MICROANGIOPATHY [None]
  - PNEUMONIA [None]
  - HYPOPHAGIA [None]
  - ASTHENIA [None]
  - THROMBOSIS [None]
  - CHRONIC ALLOGRAFT NEPHROPATHY [None]
  - DRUG LEVEL INCREASED [None]
  - DIARRHOEA [None]
  - ANAEMIA [None]
